FAERS Safety Report 14194417 (Version 7)
Quarter: 2021Q3

REPORT INFORMATION
  Report Type: Spontaneous
  Country: US (occurrence: US)
  Receive Date: 20171116
  Receipt Date: 20210701
  Transmission Date: 20211014
  Serious: No
  Sender: FDA-Public Use
  Company Number: US-PFIZER INC-2017490783

PATIENT
  Age: 63 Year
  Sex: Female

DRUGS (1)
  1. LYRICA [Suspect]
     Active Substance: PREGABALIN
     Dosage: UNK, AS NEEDED (SHE TAKES HER MEDICATION WHEN SHE NEEDS IT)

REACTIONS (6)
  - Memory impairment [Unknown]
  - Malaise [Unknown]
  - Tooth fracture [Unknown]
  - Intentional product misuse [Unknown]
  - Feeling abnormal [Unknown]
  - Pain [Unknown]
